FAERS Safety Report 4382458-X (Version None)
Quarter: 2004Q2

REPORT INFORMATION
  Report Type: 
  Country: None (occurrence: None)
  Receive Date: 20040617
  Receipt Date: 20040604
  Transmission Date: 20050107
  Serious: Yes (Hospitalization)
  Sender: FDA-Public Use
  Company Number: HQWYE260804JUN04

PATIENT
  Age: 34 Year
  Sex: Female

DRUGS (18)
  1. LODINE [Suspect]
     Indication: ARTHRALGIA
     Dosage: 400 MG 1X PER 1 DAY ORAL
     Route: 048
     Dates: start: 20040126, end: 20040205
  2. LODINE [Suspect]
     Indication: ARTHRALGIA
     Dosage: 400 MG 1X PER 1 DAY ORAL
     Route: 048
     Dates: start: 20040218, end: 20040218
  3. AMBROXOL HYDROCHLORIDE (AMBROXOL HYDROCHLORIDE,) [Suspect]
     Indication: BRONCHITIS
     Dosage: ORAL
     Route: 048
     Dates: start: 20040220, end: 20040301
  4. CARBOCISTEINE (CARBOCISTEINE,) [Suspect]
     Indication: BRONCHITIS
     Dosage: ORAL
     Route: 048
     Dates: start: 20040220, end: 20040301
  5. CLARITHROMYCIN [Suspect]
     Indication: PYREXIA
     Dosage: 400 MG 1X PER 1 DAY ORAL
     Route: 048
     Dates: start: 20040205, end: 20040205
  6. DIMEMORFAN (DIMEMORFAN,) [Suspect]
     Indication: BRONCHITIS
     Dosage: 60 MG 1X PER 1 DAY ORAL
     Route: 048
     Dates: start: 20040220, end: 20040301
  7. MINOCYCLINE HYDROCHLORIDE [Suspect]
     Indication: PYREXIA
     Dosage: 200 MG 1X PER 1 DAY ORAL
     Route: 048
     Dates: start: 20040220, end: 20040301
  8. OSELTAMIVIR (OSELTAMAVIR,) [Suspect]
     Indication: PYREXIA
     Dosage: 150 MG 1X PER 1 DAY ORAL
     Route: 048
     Dates: start: 20040205, end: 20040205
  9. OSELTAMIVIR (OSELTAMAVIR,) [Suspect]
     Indication: PYREXIA
     Dosage: 150 MG 1X PER 1 DAY ORAL
     Route: 048
     Dates: start: 20040219, end: 20040219
  10. PREDNISOLONE [Suspect]
     Indication: ARTHRALGIA
     Dosage: 5 MG 1X PER 1 DAY ORAL
     Route: 048
     Dates: start: 20040126, end: 20040205
  11. PREDNISOLONE [Suspect]
     Indication: ARTHRALGIA
     Dosage: 5 MG 1X PER 1 DAY ORAL
     Route: 048
     Dates: start: 20040218, end: 20040218
  12. SALAZOSULFAPYRIDINE (SULFASALAZINE,) [Suspect]
     Indication: ARTHRALGIA
     Dosage: 1 G 1X PER 1 DAY ORAL
     Route: 048
     Dates: start: 20040126, end: 20040205
  13. SALAZOSULFAPYRIDINE (SULFASALAZINE,) [Suspect]
     Indication: ARTHRALGIA
     Dosage: 1 G 1X PER 1 DAY ORAL
     Route: 048
     Dates: start: 20040218, end: 20040218
  14. SODIUM GUALENATE (SODIUM GUALENATE,) [Suspect]
     Indication: ARTHRALGIA
     Dosage: 1 G 1X PER 1 DAY ORAL
     Route: 048
     Dates: start: 20040126, end: 20040205
  15. SODIUM GUALENATE (SODIUM GUALENATE,) [Suspect]
     Indication: ARTHRALGIA
     Dosage: 1 G 1X PER 1 DAY ORAL
     Route: 048
     Dates: start: 20040218, end: 20040218
  16. TULOBUTEROL HYDROCHLORIDE (TULOBUTEROL HYDROCHLORIDE,) [Suspect]
     Indication: BRONCHITIS
     Dosage: 2 MG 1X PER 1 DAY ORAL
     Route: 048
     Dates: start: 20040220, end: 20040301
  17. SODIUM GUALENATE (SODIUM GUALENATE,) [Suspect]
  18. SODIUM GUALENATE (SODIUM GUALENATE,) [Suspect]

REACTIONS (5)
  - BRONCHITIS [None]
  - DRUG INEFFECTIVE [None]
  - INFLUENZA [None]
  - INTERSTITIAL LUNG DISEASE [None]
  - LYMPHOCYTE STIMULATION TEST POSITIVE [None]
